FAERS Safety Report 18463073 (Version 2)
Quarter: 2020Q4

REPORT INFORMATION
  Report Type: Spontaneous
  Country: US (occurrence: US)
  Receive Date: 20201104
  Receipt Date: 20201118
  Transmission Date: 20210114
  Serious: Yes (Other)
  Sender: FDA-Public Use
  Company Number: US-GILEAD-2020-0501585

PATIENT
  Sex: Male

DRUGS (1)
  1. ATRIPLA [Suspect]
     Active Substance: EFAVIRENZ\EMTRICITABINE\TENOFOVIR DISOPROXIL FUMARATE
     Indication: HIV INFECTION
     Dosage: UNK
     Route: 048
     Dates: start: 2006, end: 202006

REACTIONS (8)
  - Emotional distress [Unknown]
  - Anhedonia [Unknown]
  - Bone loss [Unknown]
  - Bone density abnormal [Unknown]
  - Tooth loss [Unknown]
  - Pain [Unknown]
  - Multiple fractures [Unknown]
  - Anxiety [Unknown]
